FAERS Safety Report 8951415 (Version 2)
Quarter: 2012Q4

REPORT INFORMATION
  Report Type: 
  Country: TR (occurrence: TR)
  Receive Date: 20121207
  Receipt Date: 20121231
  Transmission Date: 20130627
  Serious: Yes (Hospitalization, Other)
  Sender: FDA-Public Use
  Company Number: TR-ABBOTT-12P-161-1015825-00

PATIENT
  Age: 61 None
  Sex: Female
  Weight: 95 kg

DRUGS (3)
  1. HUMIRA [Suspect]
     Indication: ANKYLOSING SPONDYLITIS
     Route: 058
     Dates: start: 20120517, end: 20120820
  2. PREDNISOLON [Concomitant]
     Indication: ANKYLOSING SPONDYLITIS
     Dosage: 5 mg x 1
     Route: 048
     Dates: start: 20120827
  3. SULPHASALAZINE [Concomitant]
     Indication: ANKYLOSING SPONDYLITIS
     Dosage: 2x1
     Route: 048
     Dates: start: 20120827

REACTIONS (5)
  - Asthenia [Recovered/Resolved]
  - Pain [Recovered/Resolved]
  - Haemoglobin decreased [Recovered/Resolved]
  - Red blood cell sedimentation rate increased [Recovered/Resolved]
  - Cyst [Unknown]
